FAERS Safety Report 8489467-X (Version None)
Quarter: 2012Q3

REPORT INFORMATION
  Report Type: 
  Country: None (occurrence: None)
  Receive Date: 20120705
  Receipt Date: 20120626
  Transmission Date: 20120928
  Serious: Yes (Other)
  Sender: FDA-Public Use
  Company Number: BR-JNJFOC-20120613982

PATIENT
  Sex: Female

DRUGS (2)
  1. LOPERAMIDE HCL [Suspect]
     Indication: DIARRHOEA
     Route: 048
     Dates: start: 20120626
  2. LOPERAMIDE HCL [Suspect]
     Route: 048

REACTIONS (3)
  - HAEMATOCHEZIA [None]
  - PAIN [None]
  - MALAISE [None]
